FAERS Safety Report 6623867-5 (Version None)
Quarter: 2010Q1

REPORT INFORMATION
  Report Type: 
  Country: None (occurrence: None)
  Receive Date: 20100310
  Receipt Date: 20100303
  Transmission Date: 20100710
  Serious: Yes (Other)
  Sender: FDA-Public Use
  Company Number: PHEH2006US06373

PATIENT
  Sex: Female

DRUGS (33)
  1. ELIDEL [Suspect]
     Dosage: UNK, QD
     Route: 061
     Dates: start: 20021201, end: 20031101
  2. PROTOPIC [Suspect]
     Indication: VITILIGO
     Dosage: UNK, QD
     Route: 061
     Dates: start: 20021201, end: 20031101
  3. ACTONEL [Concomitant]
  4. BABY ASPIRIN [Concomitant]
  5. IRON [Concomitant]
  6. LETROZOLE [Concomitant]
  7. VICODIN [Concomitant]
  8. CLINDAMYCIN [Concomitant]
  9. RANITIDINE [Concomitant]
  10. ACETAMINOPHEN AND HYDROCODONE BITARTRATE [Concomitant]
  11. LOVENOX [Concomitant]
  12. DECADRON [Concomitant]
  13. PEPCID [Concomitant]
  14. METOCLOPRAMIDE [Concomitant]
  15. MULTIVITAMIN ^LAPPE^ [Concomitant]
  16. TAZORAC [Concomitant]
  17. DOXORUBICIN [Concomitant]
  18. CYCLOPHOSPHAMIDE [Concomitant]
  19. NEULASTA [Concomitant]
  20. ADRIAMYCIN PFS [Concomitant]
  21. CYTOXAN [Concomitant]
  22. TAXOL [Concomitant]
  23. HERCEPTIN [Suspect]
  24. ZOFRAN [Concomitant]
  25. BENADRYL ^ACHE^ [Concomitant]
  26. ATIVAN [Concomitant]
  27. PROCRIT                            /00909301/ [Concomitant]
  28. LEUKINE [Concomitant]
  29. KYTRIL [Concomitant]
  30. ALOXI [Concomitant]
  31. ARANESP [Concomitant]
  32. DOXYCYCLINE [Concomitant]
  33. KENALOG [Concomitant]

REACTIONS (14)
  - ANAEMIA [None]
  - BIOPSY BREAST ABNORMAL [None]
  - BIOPSY LYMPH GLAND [None]
  - BREAST CANCER FEMALE [None]
  - BREAST PROSTHESIS IMPLANTATION [None]
  - BREAST PROSTHESIS REMOVAL [None]
  - BREAST RECONSTRUCTION [None]
  - CENTRAL VENOUS CATHETER REMOVAL [None]
  - CENTRAL VENOUS CATHETERISATION [None]
  - INTERVERTEBRAL DISC PROTRUSION [None]
  - LYMPHADENECTOMY [None]
  - MASTECTOMY [None]
  - OSTEOPENIA [None]
  - OVARIAN CYST [None]
